FAERS Safety Report 9108173 (Version 1)
Quarter: 2013Q1

REPORT INFORMATION
  Report Type: Spontaneous
  Country: FR (occurrence: FR)
  Receive Date: 20130221
  Receipt Date: 20130221
  Transmission Date: 20140127
  Serious: Yes (Hospitalization)
  Sender: FDA-Public Use
  Company Number: FR-PFIZER INC-2013062281

PATIENT
  Age: 23 Year
  Sex: Female

DRUGS (8)
  1. TAZOCILLINE [Suspect]
     Dosage: 1 G, 2X/DAY
     Route: 042
     Dates: start: 20121120, end: 20121120
  2. GENTAMICIN ^PANPHARMA^ [Suspect]
     Dosage: 120 MG, SINGLE
     Route: 042
     Dates: start: 20121120, end: 20121120
  3. INEXIUM [Suspect]
     Dosage: 20 MG, SINGLE
     Route: 048
     Dates: start: 20121123, end: 20121123
  4. DAFALGAN [Suspect]
     Dosage: 1 G, SINGLE
     Route: 048
     Dates: start: 20121123, end: 20121123
  5. TRIATEC [Concomitant]
  6. CARDENSIEL [Concomitant]
  7. DIFFU-K [Concomitant]
  8. LASILIX [Concomitant]

REACTIONS (2)
  - Acute generalised exanthematous pustulosis [Recovered/Resolved]
  - Pruritus [Recovered/Resolved]
